FAERS Safety Report 5370659-3 (Version None)
Quarter: 2007Q2

REPORT INFORMATION
  Report Type: 
  Country: None (occurrence: None)
  Receive Date: 20070622
  Receipt Date: 20070606
  Transmission Date: 20071010
  Serious: Yes (Hospitalization)
  Sender: FDA-Public Use
  Company Number: GXKR2007AT04962

PATIENT
  Age: 83 Year
  Sex: Female

DRUGS (6)
  1. CITALOPRAM HYDROBROMIDE [Suspect]
     Dosage: ORAL
     Route: 048
  2. TEGRETOL [Suspect]
  3. VOLTAREN [Suspect]
  4. SPIRONOLACTONE [Suspect]
  5. ACECOMB                                    (HYDROCHLOROTHIAZIDE, LISIN [Suspect]
  6. LISINOPRIL [Suspect]

REACTIONS (5)
  - COGNITIVE DISORDER [None]
  - DELIRIUM [None]
  - DRUG INTERACTION [None]
  - HYPONATRAEMIA [None]
  - VOMITING [None]
